FAERS Safety Report 8077602-7 (Version None)
Quarter: 2012Q1

REPORT INFORMATION
  Report Type: 
  Country: None (occurrence: None)
  Receive Date: 20120123
  Receipt Date: 20120109
  Transmission Date: 20120608
  Serious: Yes (Life-Threatening, Hospitalization)
  Sender: FDA-Public Use
  Company Number: 2012MA000661

PATIENT
  Age: 22 Year
  Sex: Female
  Weight: 65 kg

DRUGS (1)
  1. TRAMADOL HYDROCHLORIDE [Suspect]
     Indication: INTENTIONAL OVERDOSE
     Dosage: 4500 MG;X1;PO
     Route: 048
     Dates: start: 20090801, end: 20090801

REACTIONS (15)
  - HYPOGLYCAEMIA [None]
  - CARDIOTOXICITY [None]
  - CARDIAC FAILURE CONGESTIVE [None]
  - OVERDOSE [None]
  - CARDIAC ARREST [None]
  - HEPATIC FAILURE [None]
  - TOXICITY TO VARIOUS AGENTS [None]
  - HYPOTENSION [None]
  - LACTIC ACIDOSIS [None]
  - COAGULOPATHY [None]
  - SHOCK [None]
  - HYPOTHERMIA [None]
  - MYDRIASIS [None]
  - RENAL FAILURE [None]
  - VAGINAL INFECTION [None]
